FAERS Safety Report 5179906-4 (Version None)
Quarter: 2006Q4

REPORT INFORMATION
  Report Type: 
  Country: None (occurrence: None)
  Receive Date: 20061211
  Receipt Date: 20061128
  Transmission Date: 20070319
  Serious: Yes (Life-Threatening, Hospitalization, Disabling, Other)
  Sender: FDA-Public Use
  Company Number: 2006084963

PATIENT
  Sex: Male
  Weight: 120.2032 kg

DRUGS (3)
  1. LIPITOR [Suspect]
     Indication: HYPERCHOLESTEROLAEMIA
     Dosage: (40 MG, D), ORAL
     Route: 048
     Dates: start: 20010227, end: 20060724
  2. TOPROL-XL [Concomitant]
  3. PAXIL [Concomitant]

REACTIONS (19)
  - ARTHRALGIA [None]
  - ARTHROPOD BITE [None]
  - BLOOD MAGNESIUM INCREASED [None]
  - DIARRHOEA [None]
  - DRUG INTOLERANCE [None]
  - EMOTIONAL DISTRESS [None]
  - FALL [None]
  - FORCED EXPIRATORY VOLUME DECREASED [None]
  - INCORRECT DRUG ADMINISTRATION RATE [None]
  - METABOLIC DISORDER [None]
  - MYOPATHY TOXIC [None]
  - NECROSIS [None]
  - PERIVASCULAR DERMATITIS [None]
  - PULMONARY EMBOLISM [None]
  - PYOMYOSITIS [None]
  - RESPIRATORY FAILURE [None]
  - RHABDOMYOLYSIS [None]
  - SUPRAVENTRICULAR EXTRASYSTOLES [None]
  - THERAPY NON-RESPONDER [None]
